FAERS Safety Report 8529149-9 (Version None)
Quarter: 2012Q3

REPORT INFORMATION
  Report Type: 
  Country: None (occurrence: None)
  Receive Date: 20120723
  Receipt Date: 20120718
  Transmission Date: 20120928
  Serious: Yes (Hospitalization)
  Sender: FDA-Public Use
  Company Number: US-AMGEN-USASP2011048415

PATIENT
  Age: 55 Year
  Sex: Female

DRUGS (23)
  1. IBUPROFEN [Concomitant]
     Indication: PAIN
     Dosage: 800 MG, PRN
     Route: 048
  2. BENTYL [Concomitant]
     Dosage: 10 MG, BID
     Route: 048
  3. NITRO-TIME [Concomitant]
     Dosage: 2.5 MG, PRN
  4. BUSPIRONE HCL [Concomitant]
     Dosage: 120 MG, QHS
  5. LISINOPRIL [Concomitant]
     Dosage: 5 MG, BID
  6. CARVEDILOL [Concomitant]
     Indication: BLOOD PRESSURE INCREASED
     Dosage: 6.25 MG, PRN
     Route: 048
  7. ALPRAZOLAM [Concomitant]
     Dosage: 1 MG, PRN
     Route: 048
  8. PROMETHAZINE [Concomitant]
     Dosage: 12.5 MG, PRN
     Route: 048
  9. ZOFRAN [Concomitant]
     Dosage: 4 MG, PRN
     Route: 048
  10. CIMZIA [Concomitant]
     Dosage: 400 MG, QMO
     Route: 058
  11. BUPROPION HCL [Concomitant]
     Dosage: 300 MG, QHS
     Route: 048
  12. VYTORIN [Concomitant]
     Dosage: UNK UNK, QD
  13. BUPROPION HCL [Concomitant]
     Dosage: 150 MG, QHS
     Route: 048
  14. HYDROCODONE BITARTRATE + ACETAMINOPHEN [Concomitant]
     Indication: PAIN
     Dosage: UNK UNK, PRN
     Route: 048
  15. PREDNISONE [Concomitant]
     Dosage: 5 MG, QD
  16. PROVIGIL [Concomitant]
     Dosage: 200 MG, PRN
     Route: 048
  17. CARVEDILOL [Concomitant]
     Dosage: 12.5 MG, PRN
     Route: 048
  18. ENBREL [Suspect]
     Indication: RHEUMATOID ARTHRITIS
     Dosage: 50 MG, QWK
     Dates: start: 19980101, end: 20111011
  19. NEXIUM [Concomitant]
     Dosage: 40 MG, BID
     Route: 048
  20. VAGIFEM [Concomitant]
     Dosage: 10 MUG, 3 TIMES/WK
     Route: 067
  21. TRICOR [Concomitant]
     Dosage: 145 MG, QD
     Route: 048
  22. CLONIDINE [Concomitant]
     Dosage: 0.1 MG, BID
     Route: 048
  23. MS CONTIN [Concomitant]
     Dosage: 30 MG, QD
     Route: 048

REACTIONS (11)
  - NODULE [None]
  - FIBROMYALGIA [None]
  - ONYCHOMYCOSIS [None]
  - HYPOTHALAMO-PITUITARY DISORDER [None]
  - THERAPEUTIC RESPONSE DECREASED [None]
  - SEASONAL ALLERGY [None]
  - WHITE BLOOD CELL COUNT DECREASED [None]
  - ADRENAL DISORDER [None]
  - ADVERSE EVENT [None]
  - SINUSITIS [None]
  - PAIN [None]
